FAERS Safety Report 16332532 (Version 1)
Quarter: 2019Q2

REPORT INFORMATION
  Report Type: Spontaneous
  Country: US (occurrence: US)
  Receive Date: 20190520
  Receipt Date: 20190520
  Transmission Date: 20190711
  Serious: No
  Sender: FDA-Public Use
  Company Number: US-PFIZER INC-2019209300

PATIENT
  Age: 66 Year
  Sex: Female
  Weight: 68.4 kg

DRUGS (1)
  1. LYRICA [Suspect]
     Active Substance: PREGABALIN
     Indication: NEUROPATHY PERIPHERAL
     Dosage: 75 MG, 2X/DAY (TAKES 1 CAPSULE IN THE MORNING AND 1 CAPSULE IN THE EVENING BY MOUTH)
     Route: 048
     Dates: start: 20190509

REACTIONS (3)
  - Blister [Not Recovered/Not Resolved]
  - Pruritus [Unknown]
  - Insomnia [Unknown]

NARRATIVE: CASE EVENT DATE: 20190510
